FAERS Safety Report 5605140-7 (Version None)
Quarter: 2008Q1

REPORT INFORMATION
  Report Type: 
  Country: None (occurrence: None)
  Receive Date: 20080123
  Receipt Date: 20080110
  Transmission Date: 20080703
  Serious: Yes (Other)
  Sender: FDA-Public Use
  Company Number: 2008US000203

PATIENT
  Age: 4 Year
  Sex: Female

DRUGS (1)
  1. PROGRAF [Suspect]
     Dosage: 0.25 MG/KG,

REACTIONS (4)
  - ABDOMINAL PAIN [None]
  - COLD TYPE HAEMOLYTIC ANAEMIA [None]
  - HEADACHE [None]
  - VOMITING [None]
